FAERS Safety Report 6428077-2 (Version None)
Quarter: 2009Q4

REPORT INFORMATION
  Report Type: 
  Country: None (occurrence: None)
  Receive Date: 20091102
  Receipt Date: 20091020
  Transmission Date: 20100525
  Serious: No
  Sender: FDA-Public Use
  Company Number: 002196

PATIENT
  Sex: Female
  Weight: 49 kg

DRUGS (4)
  1. ROTIGOTINE (ROTIGOTINE) [Suspect]
  2. CARBILEV [Concomitant]
  3. AMANTADINE HCL [Concomitant]
  4. COMTAN [Concomitant]

REACTIONS (1)
  - MALAISE [None]
